FAERS Safety Report 8614423-8 (Version None)
Quarter: 2012Q3

REPORT INFORMATION
  Report Type: 
  Country: None (occurrence: None)
  Receive Date: 20120810
  Receipt Date: 20120731
  Transmission Date: 20120928
  Serious: Yes (Disabling, Other)
  Sender: FDA-Public Use
  Company Number: USA/USA/12/0025278

PATIENT
  Age: 20 Year
  Sex: Female

DRUGS (2)
  1. AUGMENTIN [Suspect]
     Indication: LOCALISED INFECTION
     Dosage: 250 MG, 2 IN 1 D, ORAL
     Route: 048
  2. LAMICTAL [Suspect]
     Indication: CONVULSION
     Dosage: 700 MG, 1 IN 1 D, ORAL
     Route: 048
     Dates: start: 20120201

REACTIONS (4)
  - DIZZINESS [None]
  - GRAND MAL CONVULSION [None]
  - GAIT DISTURBANCE [None]
  - MALAISE [None]
